FAERS Safety Report 5287704-6 (Version None)
Quarter: 2007Q1

REPORT INFORMATION
  Report Type: 
  Country: None (occurrence: None)
  Receive Date: 20070116
  Receipt Date: 20060917
  Transmission Date: 20070707
  Serious: No
  Sender: FDA-Public Use
  Company Number: 2006SP003312

PATIENT
  Age: 57 Year
  Sex: Female
  Weight: 53.5244 kg

DRUGS (5)
  1. LUNESTA [Suspect]
     Indication: SLEEP DISORDER
     Dosage: 2 MG; HS; ORAL
     Route: 048
     Dates: start: 20060803, end: 20060821
  2. ADVAIR DISKUS 100/50 [Concomitant]
  3. SINGULAIR [Concomitant]
  4. MELATONIN [Concomitant]
  5. TYLENOL EXTRA-STRENGTH [Concomitant]

REACTIONS (4)
  - DRUG INEFFECTIVE [None]
  - HEADACHE [None]
  - INSOMNIA [None]
  - SOMNOLENCE [None]
